FAERS Safety Report 25041933 (Version 1)
Quarter: 2025Q1

REPORT INFORMATION
  Report Type: Spontaneous
  Country: US (occurrence: None)
  Receive Date: 20250303
  Receipt Date: 20250303
  Transmission Date: 20250408
  Serious: Yes (Disabling)
  Sender: FDA-CTU
  Company Number: None

PATIENT
  Age: 40 Year
  Sex: Female
  Weight: 81.65 kg

DRUGS (10)
  1. NEXPLANON [Suspect]
     Active Substance: ETONOGESTREL
  2. VYVANSE [Concomitant]
     Active Substance: LISDEXAMFETAMINE DIMESYLATE
  3. LEXAPRO [Concomitant]
     Active Substance: ESCITALOPRAM OXALATE
  4. SUMATRIPTAN [Concomitant]
     Active Substance: SUMATRIPTAN
  5. ATIVAN [Concomitant]
     Active Substance: LORAZEPAM
  6. ALEVE [Concomitant]
     Active Substance: NAPROXEN SODIUM
  7. TYLENOL [Concomitant]
     Active Substance: ACETAMINOPHEN
  8. GAS-X [Concomitant]
     Active Substance: DIMETHICONE
  9. TUMS [Concomitant]
     Active Substance: CALCIUM CARBONATE
  10. IBUPROFEN [Concomitant]
     Active Substance: IBUPROFEN

REACTIONS (10)
  - Nausea [None]
  - Weight increased [None]
  - Contusion [None]
  - Fatigue [None]
  - Alopecia [None]
  - Back pain [None]
  - Vulvovaginal pain [None]
  - Pruritus [None]
  - Dry skin [None]
  - Headache [None]

NARRATIVE: CASE EVENT DATE: 20250201
